FAERS Safety Report 18156865 (Version 1)
Quarter: 2020Q3

REPORT INFORMATION
  Report Type: Spontaneous
  Country: US (occurrence: US)
  Receive Date: 20200817
  Receipt Date: 20200817
  Transmission Date: 20201103
  Serious: No
  Sender: FDA-Public Use
  Company Number: None

PATIENT
  Age: 79 Year
  Sex: Female
  Weight: 67.6 kg

DRUGS (12)
  1. ELIQUIS [Concomitant]
     Active Substance: APIXABAN
  2. SUTENT [Suspect]
     Active Substance: SUNITINIB MALATE
     Indication: GASTROINTESTINAL STROMAL TUMOUR
     Route: 048
  3. ALPRAZOLAM. [Concomitant]
     Active Substance: ALPRAZOLAM
  4. VITAMIN C [Concomitant]
     Active Substance: ASCORBIC ACID
  5. AMPLODIPINE [Concomitant]
  6. ATENOLOL. [Concomitant]
     Active Substance: ATENOLOL
  7. LOSARTAN. [Concomitant]
     Active Substance: LOSARTAN
  8. SPIRIVA [Concomitant]
     Active Substance: TIOTROPIUM BROMIDE MONOHYDRATE
  9. PULMICORT TURBUHALER [Concomitant]
     Active Substance: BUDESONIDE
  10. VIT D [Concomitant]
     Active Substance: VITAMIN D NOS
  11. PREMARIN [Concomitant]
     Active Substance: ESTROGENS, CONJUGATED
  12. ATORVASTATIN [Concomitant]
     Active Substance: ATORVASTATIN

REACTIONS (1)
  - Acute kidney injury [None]

NARRATIVE: CASE EVENT DATE: 20200817
